FAERS Safety Report 8515672-X (Version None)
Quarter: 2012Q3

REPORT INFORMATION
  Report Type: 
  Country: None (occurrence: None)
  Receive Date: 20120717
  Receipt Date: 20120711
  Transmission Date: 20120928
  Serious: Yes (Disabling, Other)
  Sender: FDA-Public Use
  Company Number: PHHY2012CR059727

PATIENT
  Age: 45 Year
  Sex: Male
  Weight: 70 kg

DRUGS (1)
  1. SANDOSTATIN LAR [Suspect]
     Indication: HYPERPLASIA
     Dosage: 40 MG, QMO
     Route: 030

REACTIONS (5)
  - ALCOHOL ABUSE [None]
  - APALLIC SYNDROME [None]
  - HYPOGLYCAEMIA [None]
  - DIABETIC COMA [None]
  - METABOLIC ENCEPHALOPATHY [None]
